FAERS Safety Report 11710150 (Version 2)
Quarter: 2015Q4

REPORT INFORMATION
  Report Type: Spontaneous
  Country: US (occurrence: US)
  Receive Date: 20151104
  Receipt Date: 20151110
  Transmission Date: 20160304
  Serious: No
  Sender: FDA-Public Use
  Company Number: US-ELI_LILLY_AND_COMPANY-US201104002012

PATIENT
  Age: 64 Year
  Sex: Female

DRUGS (4)
  1. FORTEO [Suspect]
     Active Substance: TERIPARATIDE
     Indication: OSTEOPOROSIS
     Dosage: 20 UG, QD
     Route: 065
     Dates: start: 201102
  2. FORTEO [Suspect]
     Active Substance: TERIPARATIDE
     Dosage: 20 UG, QD
  3. FORTEO [Suspect]
     Active Substance: TERIPARATIDE
     Dosage: 20 UG, QD
  4. ENBREL [Concomitant]
     Active Substance: ETANERCEPT
     Dosage: UNK, WEEKLY (1/W)

REACTIONS (7)
  - Migraine [Unknown]
  - Inappropriate schedule of drug administration [Unknown]
  - Tooth injury [Not Recovered/Not Resolved]
  - Pain in extremity [Unknown]
  - Pigmentation disorder [Not Recovered/Not Resolved]
  - Dizziness [Unknown]
  - Injection site pain [Unknown]

NARRATIVE: CASE EVENT DATE: 201103
